FAERS Safety Report 14962841 (Version 1)
Quarter: 2018Q2

REPORT INFORMATION
  Report Type: Spontaneous
  Country: US (occurrence: US)
  Receive Date: 20180601
  Receipt Date: 20180601
  Transmission Date: 20180711
  Serious: Yes (Hospitalization)
  Sender: FDA-Public Use
  Company Number: US-NOVAST LABORATORIES, LTD-US-2018NOV000213

PATIENT
  Age: 18 Week

DRUGS (1)
  1. INDOMETHACIN. [Suspect]
     Active Substance: INDOMETHACIN
     Indication: PRODUCT USED FOR UNKNOWN INDICATION
     Dosage: UNK
     Route: 064

REACTIONS (7)
  - Right ventricular hypertrophy [Recovered/Resolved]
  - Right atrial dilatation [Recovering/Resolving]
  - Right ventricular dysfunction [Recovered/Resolved]
  - Foetal exposure during pregnancy [Unknown]
  - Right ventricular hypertension [Recovering/Resolving]
  - Ductus arteriosus premature closure [Recovering/Resolving]
  - Tricuspid valve incompetence [Recovering/Resolving]
